FAERS Safety Report 7957653-0 (Version None)
Quarter: 2011Q4

REPORT INFORMATION
  Report Type: 
  Country: None (occurrence: None)
  Receive Date: 20111205
  Receipt Date: 20111124
  Transmission Date: 20120403
  Serious: Yes (Hospitalization, Other)
  Sender: FDA-Public Use
  Company Number: PHHY2011JP95206

PATIENT
  Sex: Female
  Weight: 44 kg

DRUGS (6)
  1. MYOCALM [Suspect]
     Indication: PROPHYLAXIS
     Dosage: 36 ML, DAILY
     Route: 048
     Dates: start: 20110815
  2. DEPAKENE [Concomitant]
  3. EXELON [Suspect]
     Dosage: 4.5 MG, DAILY
     Route: 062
     Dates: start: 20110907, end: 20110916
  4. GASMOTIN [Concomitant]
     Route: 048
  5. EXELON [Suspect]
     Indication: DEMENTIA ALZHEIMER'S TYPE
     Dosage: 4.5 MG, DAILY
     Route: 062
     Dates: start: 20110823, end: 20110826
  6. DAI-KENCHU-TO [Concomitant]
     Route: 048

REACTIONS (12)
  - NAUSEA [None]
  - BLOOD PRESSURE DECREASED [None]
  - WHITE BLOOD CELL COUNT INCREASED [None]
  - PLATELET COUNT INCREASED [None]
  - PYREXIA [None]
  - ASPIRATION [None]
  - LYMPHOCYTE COUNT DECREASED [None]
  - PALLOR [None]
  - C-REACTIVE PROTEIN INCREASED [None]
  - ABDOMINAL DISTENSION [None]
  - VOMITING [None]
  - BLOOD SODIUM DECREASED [None]
